FAERS Safety Report 9591795 (Version 1)
Quarter: 2013Q4

REPORT INFORMATION
  Report Type: Spontaneous
  Country: US (occurrence: US)
  Receive Date: 20131004
  Receipt Date: 20131004
  Transmission Date: 20140711
  Serious: No
  Sender: FDA-Public Use
  Company Number: US-AMGEN-USASP2012082960

PATIENT
  Sex: Male

DRUGS (2)
  1. ENBREL [Suspect]
     Indication: RHEUMATOID ARTHRITIS
     Dosage: 50 MG, QWK
     Route: 058
  2. ROXICODONE [Concomitant]
     Dosage: 5 MG, UNK

REACTIONS (4)
  - Pain [Unknown]
  - Swelling [Unknown]
  - Fatigue [Unknown]
  - Nasopharyngitis [Unknown]
